FAERS Safety Report 10267636 (Version 1)
Quarter: 2014Q2

REPORT INFORMATION
  Report Type: Spontaneous
  Country: US (occurrence: US)
  Receive Date: 20140630
  Receipt Date: 20140630
  Transmission Date: 20141212
  Serious: Yes (Other)
  Sender: FDA-Public Use
  Company Number: US-PFIZER INC-2014178884

PATIENT
  Sex: Female

DRUGS (4)
  1. TIKOSYN [Suspect]
     Indication: ATRIAL FIBRILLATION
     Dosage: 0.25 MG, 2X/DAY
     Route: 048
     Dates: start: 201212, end: 201404
  2. TIKOSYN [Suspect]
     Dosage: 0.375 MG (ONE CAPSULE OF 0.25MG AND ONE CAPSULE OF 0.125MG), 2X/DAY
     Route: 048
     Dates: start: 201404
  3. PRADAXA [Concomitant]
     Dosage: UNK
  4. DIGOXIN [Concomitant]
     Dosage: UNK

REACTIONS (2)
  - Atrial fibrillation [Not Recovered/Not Resolved]
  - Atrial fibrillation [Not Recovered/Not Resolved]
